FAERS Safety Report 11188614 (Version 2)
Quarter: 2015Q3

REPORT INFORMATION
  Report Type: Spontaneous
  Country: US (occurrence: US)
  Receive Date: 20150615
  Receipt Date: 20150709
  Transmission Date: 20151125
  Serious: Yes (Other)
  Sender: FDA-Public Use
  Company Number: US-009507513-1506USA002958

PATIENT
  Sex: Female
  Weight: 113 kg

DRUGS (10)
  1. ZORVOLEX [Concomitant]
     Active Substance: DICLOFENAC
     Indication: OSTEOARTHRITIS
     Dosage: 18 MG, ONE IN MORNING AND ONE IN EVENING
     Route: 048
  2. MAGNESIUM (UNSPECIFIED) [Concomitant]
     Active Substance: MAGNESIUM
     Dosage: 250 MG, QD, TABLET
     Route: 048
  3. CINNAMON. [Concomitant]
     Active Substance: CINNAMON
     Indication: BLOOD GLUCOSE
     Dosage: 2 TABLETS, BID
  4. CHOLECALCIFEROL [Concomitant]
     Active Substance: CHOLECALCIFEROL
     Dosage: 1000 MG, QD, TABLET
     Route: 048
  5. MELATONIN [Concomitant]
     Active Substance: MELATONIN
     Indication: SLEEP DISORDER
     Dosage: 10 MG, HS (AT BEDTIME)
     Route: 048
  6. OMEPRAZOLE. [Concomitant]
     Active Substance: OMEPRAZOLE
     Indication: GASTROOESOPHAGEAL REFLUX DISEASE
     Dosage: 20 MG, QD
     Route: 048
  7. VALIUM [Concomitant]
     Active Substance: DIAZEPAM
     Indication: NEUROPATHY PERIPHERAL
     Dosage: CAN TAKE 5-10MG, SO TAKES 1 1/2 TABLETS TO EQUAL 7.5MG, EACH EVENING
     Route: 048
  8. PRINIVIL [Suspect]
     Active Substance: LISINOPRIL
     Dosage: UNK
     Route: 048
  9. OMEGA-3 MARINE TRIGLYCERIDES [Concomitant]
     Active Substance: FISH OIL
     Indication: BLOOD CHOLESTEROL
     Dosage: 1 GEL CAP ONCE A DAY
     Route: 048
  10. FLAXSEED [Concomitant]
     Active Substance: FLAX SEED
     Indication: BLOOD CHOLESTEROL
     Dosage: ONE GEL CAP, QD
     Route: 048

REACTIONS (2)
  - Aphonia [Unknown]
  - Cough [Unknown]
